FAERS Safety Report 17868183 (Version 2)
Quarter: 2021Q1

REPORT INFORMATION
  Report Type: Spontaneous
  Country: CA (occurrence: CA)
  Receive Date: 20200606
  Receipt Date: 20210110
  Transmission Date: 20210419
  Serious: Yes (Hospitalization)
  Sender: FDA-Public Use
  Company Number: CA-ABBVIE-20K-028-3421149-00

PATIENT
  Age: 52 Year
  Sex: Male
  Weight: 47 kg

DRUGS (10)
  1. AZATHIOPRINE. [Concomitant]
     Active Substance: AZATHIOPRINE
     Indication: PRODUCT USED FOR UNKNOWN INDICATION
  2. HUMIRA [Suspect]
     Active Substance: ADALIMUMAB
     Route: 058
     Dates: end: 20200220
  3. SULFASALAZINE. [Suspect]
     Active Substance: SULFASALAZINE
     Indication: PRODUCT USED FOR UNKNOWN INDICATION
     Route: 065
  4. ASACOL [Suspect]
     Active Substance: MESALAMINE
     Indication: PRODUCT USED FOR UNKNOWN INDICATION
     Route: 065
  5. HUMIRA [Suspect]
     Active Substance: ADALIMUMAB
     Indication: COLITIS ULCERATIVE
     Route: 058
  6. INFLECTRA [Suspect]
     Active Substance: INFLIXIMAB-DYYB
     Dosage: Q0,2,6 WEEKS AND THEN EVERY 8WEEK
     Route: 042
     Dates: start: 202004
  7. IMURAN [Concomitant]
     Active Substance: AZATHIOPRINE
     Indication: PRODUCT USED FOR UNKNOWN INDICATION
  8. CORTICOSTEROIDS [Concomitant]
     Active Substance: CORTICOSTEROID NOS
     Indication: PRODUCT USED FOR UNKNOWN INDICATION
  9. INFLECTRA [Suspect]
     Active Substance: INFLIXIMAB-DYYB
     Indication: COLITIS ULCERATIVE
     Dosage: Q 0 ,2, 6 WEEKS AND THEN EVERY 8 WEEK
     Route: 042
     Dates: start: 20200306, end: 2020
  10. PREDNISONE. [Concomitant]
     Active Substance: PREDNISONE
     Indication: PRODUCT USED FOR UNKNOWN INDICATION
     Dosage: TAPERING DOSE
     Dates: end: 202004

REACTIONS (22)
  - Pain in extremity [Unknown]
  - Cardiovascular disorder [Unknown]
  - Product use issue [Unknown]
  - Arthralgia [Unknown]
  - Diarrhoea haemorrhagic [Unknown]
  - Drug ineffective [Unknown]
  - C-reactive protein abnormal [Unknown]
  - Loss of personal independence in daily activities [Unknown]
  - Rectal haemorrhage [Unknown]
  - Blood disorder [Unknown]
  - Drug level decreased [Unknown]
  - Drug level below therapeutic [Unknown]
  - Rash [Unknown]
  - Drug ineffective [Unknown]
  - Off label use [Unknown]
  - Peripheral coldness [Unknown]
  - Frequent bowel movements [Unknown]
  - Impaired work ability [Unknown]
  - Colitis [Unknown]
  - Restless legs syndrome [Unknown]
  - Nausea [Unknown]
  - Decreased activity [Unknown]

NARRATIVE: CASE EVENT DATE: 201912
